FAERS Safety Report 12920452 (Version 7)
Quarter: 2017Q2

REPORT INFORMATION
  Report Type: Spontaneous
  Country: US (occurrence: US)
  Receive Date: 20161108
  Receipt Date: 20170518
  Transmission Date: 20170830
  Serious: Yes (Congenital Anomaly, Other)
  Sender: FDA-Public Use
  Company Number: PHEH2016US028549

PATIENT
  Sex: Male

DRUGS (1)
  1. ZOFRAN ODT [Suspect]
     Active Substance: ONDANSETRON HYDROCHLORIDE
     Indication: FOETAL EXPOSURE DURING PREGNANCY
     Dosage: MOTHER^S DOSE: 01 TABLET (DF), BID
     Route: 064

REACTIONS (6)
  - Foetal exposure during pregnancy [Unknown]
  - Congenital aortic stenosis [Unknown]
  - Congenital aortic valve incompetence [Unknown]
  - Left ventricular hypertrophy [Unknown]
  - Bicuspid aortic valve [Unknown]
  - Injury [Unknown]
